FAERS Safety Report 9717425 (Version 2)
Quarter: 2015Q3

REPORT INFORMATION
  Report Type: Spontaneous
  Country: US (occurrence: US)
  Receive Date: 20131127
  Receipt Date: 20150803
  Transmission Date: 20151125
  Serious: No
  Sender: FDA-Public Use
  Company Number: US-GILEAD-2008-0019655

PATIENT
  Age: 52 Year
  Sex: Female
  Weight: 81.65 kg

DRUGS (13)
  1. BIOTIN [Concomitant]
     Active Substance: BIOTIN
     Route: 048
  2. WELCHOL [Concomitant]
     Active Substance: COLESEVELAM HYDROCHLORIDE
     Route: 048
  3. FISH OIL [Concomitant]
     Active Substance: FISH OIL
     Route: 048
  4. LEVOXYL [Concomitant]
     Active Substance: LEVOTHYROXINE SODIUM
     Route: 048
  5. CRANBERRY CAPSULE [Concomitant]
     Active Substance: DIETARY SUPPLEMENT
     Route: 048
  6. TRICOR [Concomitant]
     Active Substance: FENOFIBRATE
     Route: 048
  7. MOBIC [Concomitant]
     Active Substance: MELOXICAM
     Route: 048
  8. PROTONIX [Concomitant]
     Active Substance: PANTOPRAZOLE SODIUM
     Route: 048
  9. SUDAFED [Concomitant]
     Active Substance: PSEUDOEPHEDRINE HYDROCHLORIDE
     Route: 048
  10. BENADRYL [Concomitant]
     Active Substance: DIPHENHYDRAMINE HYDROCHLORIDE
     Route: 048
  11. FLAX SEED [Concomitant]
     Active Substance: FLAX SEED
     Route: 048
  12. LETAIRIS [Suspect]
     Active Substance: AMBRISENTAN
     Indication: COR PULMONALE CHRONIC
     Route: 048
     Dates: start: 20081219
  13. PLAQUENIL [Concomitant]
     Active Substance: HYDROXYCHLOROQUINE SULFATE
     Route: 048

REACTIONS (2)
  - Hypoaesthesia [Unknown]
  - Peripheral swelling [Unknown]
